FAERS Safety Report 7960230-9 (Version None)
Quarter: 2011Q4

REPORT INFORMATION
  Report Type: 
  Country: None (occurrence: None)
  Receive Date: 20111206
  Receipt Date: 20111129
  Transmission Date: 20120403
  Serious: Yes (Other)
  Sender: FDA-Public Use
  Company Number: US-UCBSA-044863

PATIENT
  Age: 24 Hour
  Sex: Female
  Weight: 1.58 kg

DRUGS (41)
  1. ASACOL [Concomitant]
     Route: 064
  2. PREDNISONE TAB [Concomitant]
     Dosage: DAILY DOSE: 25 MG
     Route: 064
     Dates: start: 20110512, end: 20110525
  3. AUGMENTIN [Concomitant]
     Indication: CROHN'S DISEASE
     Route: 064
     Dates: start: 20110603, end: 20110613
  4. OXYCODONE HCL [Concomitant]
     Indication: PAIN
     Dosage: ONE TABLET EVERY FOUR TO SIX HOURS
     Route: 064
  5. VANCOMYCIN [Concomitant]
     Dosage: FOR TWO DAYS
     Route: 064
  6. UNASYN [Concomitant]
     Indication: INFECTION
     Route: 064
     Dates: start: 20110814, end: 20110823
  7. PREPARATION H OINTMENT [Concomitant]
     Dosage: 4 TIMES AS NEEDED
     Route: 064
  8. ASACOL [Concomitant]
     Indication: CROHN'S DISEASE
     Route: 064
     Dates: start: 19991105
  9. PREDNISONE TAB [Concomitant]
     Dosage: 60 MG
     Route: 064
     Dates: end: 20110601
  10. PREDNISONE TAB [Concomitant]
     Route: 064
  11. KEFLEX [Concomitant]
     Indication: URINARY TRACT INFECTION
     Route: 064
     Dates: start: 20110811, end: 20110823
  12. DIPHENOXYLATE HCL + ATROPINE SULFATE [Concomitant]
     Route: 064
  13. PREDNISONE TAB [Concomitant]
     Dosage: DAILY DOSE: 10 MG
     Route: 064
     Dates: start: 20110609
  14. PRILOSEC [Concomitant]
     Indication: DYSPEPSIA
     Route: 064
     Dates: start: 20110412
  15. PREDNISONE TAB [Concomitant]
     Indication: CROHN'S DISEASE
     Dosage: DAILY DOSE: 60 MG
     Route: 064
     Dates: start: 20110601
  16. PREDNISONE TAB [Concomitant]
     Dosage: DAILY DOSE: 50 MG
     Route: 064
     Dates: start: 20110414, end: 20110427
  17. IV STEROIDS [Concomitant]
     Route: 064
  18. PANTOPRAZOLE [Concomitant]
     Route: 064
  19. PERIDEX [Concomitant]
     Dosage: 3 TIMES DAILY
     Route: 064
  20. ZOLOFT [Concomitant]
     Dosage: DAILY DOSE: 50 MG
     Route: 064
  21. PREDNISONE TAB [Concomitant]
     Route: 064
     Dates: start: 20110601, end: 20110601
  22. PREDNISONE TAB [Concomitant]
     Dosage: DAILY DOSE: 20 MG
     Route: 064
     Dates: start: 20110526, end: 20110608
  23. SOLU-MEDROL [Concomitant]
     Route: 064
  24. FOL CAPS OMEGA 3 [Concomitant]
     Route: 064
  25. PREDNISONE TAB [Concomitant]
     Dosage: DAILY DOSE: 40 MG
     Route: 064
     Dates: start: 20110428, end: 20110511
  26. MACROBID [Concomitant]
     Indication: CROHN'S DISEASE
     Route: 064
     Dates: start: 20110603, end: 20110820
  27. KEFLEX [Concomitant]
     Indication: CROHN'S DISEASE
     Route: 064
     Dates: start: 20110811, end: 20110823
  28. KEFLEX [Concomitant]
     Dosage: 500 MG
     Route: 064
     Dates: start: 20110614, end: 20110621
  29. ACYCLOVIR [Concomitant]
     Indication: CROHN'S DISEASE
     Route: 064
     Dates: start: 20110513, end: 20110628
  30. PHENERGAN [Concomitant]
     Indication: NAUSEA
     Dosage: 25 MG TWICE A DAY
     Route: 064
     Dates: start: 20110412
  31. ORAL STEROIDS [Concomitant]
     Route: 064
  32. ACTOS [Concomitant]
     Indication: GESTATIONAL DIABETES
     Dosage: 15 MG DAILY
     Route: 064
  33. ALBUTEROL [Concomitant]
     Route: 064
  34. CIMZIA [Suspect]
     Indication: CROHN'S DISEASE
     Route: 064
     Dates: start: 20101201, end: 20110820
  35. CIPROFLOXACIN [Concomitant]
     Indication: CROHN'S DISEASE
     Route: 064
     Dates: start: 20100706
  36. IMODIUM [Concomitant]
     Route: 064
  37. NYSTATIN [Concomitant]
     Dosage: FOUR TIMES DAILY
     Route: 064
  38. MULTI-VITAMINS [Concomitant]
     Route: 064
  39. PREDNISONE TAB [Concomitant]
     Dosage: DAILY DOSE: 60 MG
     Route: 064
     Dates: start: 20110331, end: 20110413
  40. KEFLEX [Concomitant]
     Dosage: 500 MG
     Route: 064
     Dates: start: 20110614, end: 20110621
  41. LOMOTIL [Concomitant]
     Indication: DIARRHOEA
     Dosage: 2.5-0.025 MG TID
     Route: 064

REACTIONS (2)
  - FOETAL EXPOSURE DURING PREGNANCY [None]
  - PREMATURE BABY [None]
